FAERS Safety Report 16791247 (Version 2)
Quarter: 2021Q1

REPORT INFORMATION
  Report Type: Spontaneous
  Country: US (occurrence: US)
  Receive Date: 20190910
  Receipt Date: 20210319
  Transmission Date: 20210419
  Serious: Yes (Life-Threatening, Hospitalization, Other)
  Sender: FDA-Public Use
  Company Number: US-MYLANLABS-2008S1002617

PATIENT
  Age: 14 Year
  Sex: Female
  Weight: 51 kg

DRUGS (2)
  1. ACETAMINOPHEN. [Concomitant]
     Active Substance: ACETAMINOPHEN
     Dosage: UNK
  2. BACLOFEN TABLETS, USP [Suspect]
     Active Substance: BACLOFEN
     Indication: PRODUCT USED FOR UNKNOWN INDICATION
     Dosage: 1200 MILLIGRAM, SIXTY 20MG (TOTAL 1200MG) BACLOFEN TABLETS
     Route: 048

REACTIONS (12)
  - Seizure [Recovered/Resolved]
  - Intentional overdose [Recovered/Resolved]
  - Hypotension [Recovered/Resolved]
  - Toxicity to various agents [Recovered/Resolved]
  - Depressed level of consciousness [Recovered/Resolved]
  - Leukocytosis [Unknown]
  - Respiratory failure [Recovered/Resolved]
  - Bradycardia [Recovered/Resolved]
  - Status epilepticus [Recovered/Resolved]
  - Electrocardiogram QT prolonged [Recovered/Resolved]
  - Areflexia [Recovered/Resolved]
  - Coma [Recovered/Resolved]
